FAERS Safety Report 13542341 (Version 1)
Quarter: 2017Q2

REPORT INFORMATION
  Report Type: Spontaneous
  Country: US (occurrence: US)
  Receive Date: 20170512
  Receipt Date: 20170512
  Transmission Date: 20170830
  Serious: No
  Sender: FDA-Public Use
  Company Number: US-009507513-1705USA000660

PATIENT
  Age: 50 Year
  Sex: Female

DRUGS (3)
  1. MOMETASONE FUROATE (WARRICK) [Suspect]
     Active Substance: MOMETASONE FUROATE
     Indication: RASH
     Dosage: UNK
     Dates: start: 201610, end: 201612
  2. ELOCON [Suspect]
     Active Substance: MOMETASONE FUROATE
     Indication: RASH
     Dosage: UNK
     Dates: start: 2012, end: 201610
  3. ELOCON [Suspect]
     Active Substance: MOMETASONE FUROATE
     Dosage: UNK
     Route: 065
     Dates: start: 201612, end: 201703

REACTIONS (4)
  - Disease recurrence [Not Recovered/Not Resolved]
  - Drug dose omission [Unknown]
  - Drug ineffective [Unknown]
  - Circumstance or information capable of leading to medication error [Unknown]

NARRATIVE: CASE EVENT DATE: 201610
